FAERS Safety Report 5991573-6 (Version None)
Quarter: 2008Q4

REPORT INFORMATION
  Report Type: 
  Country: None (occurrence: None)
  Receive Date: 20081211
  Receipt Date: 20080501
  Transmission Date: 20090506
  Serious: No
  Sender: FDA-Public Use
  Company Number: US-AMGEN-KDL276271

PATIENT
  Sex: Female

DRUGS (2)
  1. ENBREL [Suspect]
     Indication: RHEUMATOID ARTHRITIS
     Route: 058
     Dates: start: 20021218
  2. PLAQUENIL [Concomitant]
     Dates: start: 19980101

REACTIONS (6)
  - ASTHENIA [None]
  - ASTHMA [None]
  - HAEMOGLOBIN DECREASED [None]
  - JOINT STIFFNESS [None]
  - MICROCYTIC ANAEMIA [None]
  - OBESITY [None]
